FAERS Safety Report 16198438 (Version 1)
Quarter: 2019Q2

REPORT INFORMATION
  Report Type: Spontaneous
  Country: US (occurrence: US)
  Receive Date: 20190415
  Receipt Date: 20190415
  Transmission Date: 20190711
  Serious: No
  Sender: FDA-Public Use
  Company Number: US-BEH-2019101358

PATIENT
  Age: 20 Year
  Sex: Male

DRUGS (1)
  1. HUMATE-P [Suspect]
     Active Substance: HUMAN COAGULATION FACTOR VIII/VON WILLEBRAND FACTOR COMPLEX
     Indication: VON WILLEBRAND^S DISEASE
     Dosage: UNK, PRN
     Route: 042
     Dates: start: 2018

REACTIONS (2)
  - Loss of personal independence in daily activities [Unknown]
  - Lethargy [Unknown]

NARRATIVE: CASE EVENT DATE: 201903
